FAERS Safety Report 5511371-7 (Version None)
Quarter: 2007Q4

REPORT INFORMATION
  Report Type: 
  Country: None (occurrence: None)
  Receive Date: 20071109
  Receipt Date: 20071011
  Transmission Date: 20080405
  Serious: No
  Sender: FDA-Public Use
  Company Number: A0684353A

PATIENT
  Age: 63 Year
  Sex: Male
  Weight: 92.3 kg

DRUGS (1)
  1. ALTABAX [Suspect]
     Indication: SKIN LESION
     Route: 061
     Dates: start: 20070901, end: 20070901

REACTIONS (3)
  - APPLICATION SITE ERYTHEMA [None]
  - PRURITUS [None]
  - SKIN IRRITATION [None]
